FAERS Safety Report 6064572-6 (Version None)
Quarter: 2009Q1

REPORT INFORMATION
  Report Type: 
  Country: None (occurrence: None)
  Receive Date: 20090204
  Receipt Date: 20090130
  Transmission Date: 20090719
  Serious: Yes (Hospitalization)
  Sender: FDA-Public Use
  Company Number: B0494292A

PATIENT
  Age: 22 Year
  Sex: Male

DRUGS (2)
  1. VALTREX [Suspect]
     Indication: KAPOSI'S VARICELLIFORM ERUPTION
     Dosage: 500MG TWICE PER DAY
     Route: 048
     Dates: start: 20071029, end: 20071101
  2. ACICLOVIR [Suspect]
     Indication: DRUG USE FOR UNKNOWN INDICATION
     Dosage: 250MG PER DAY
     Route: 042
     Dates: start: 20071102, end: 20071104

REACTIONS (6)
  - ALTERED STATE OF CONSCIOUSNESS [None]
  - ENCEPHALOPATHY [None]
  - HALLUCINATION [None]
  - PORIOMANIA [None]
  - RESTLESSNESS [None]
  - SOLILOQUY [None]
